FAERS Safety Report 10595105 (Version 3)
Quarter: 2015Q1

REPORT INFORMATION
  Report Type: Spontaneous
  Country: BR (occurrence: BR)
  Receive Date: 20141120
  Receipt Date: 20150220
  Transmission Date: 20150720
  Serious: No
  Sender: FDA-Public Use
  Company Number: BR-ROCHE-1460023

PATIENT
  Sex: Female

DRUGS (1)
  1. XELODA [Suspect]
     Active Substance: CAPECITABINE
     Indication: NEUROENDOCRINE TUMOUR
     Dosage: SECOND LINE TREATMENT
     Route: 048
     Dates: start: 2011, end: 201402

REACTIONS (2)
  - Pregnancy [Unknown]
  - No adverse event [Unknown]
